FAERS Safety Report 8591238-0 (Version None)
Quarter: 2012Q3

REPORT INFORMATION
  Report Type: 
  Country: None (occurrence: None)
  Receive Date: 20120813
  Receipt Date: 20120626
  Transmission Date: 20120928
  Serious: Yes (Other)
  Sender: FDA-Public Use
  Company Number: PHHY2012VE069357

PATIENT
  Sex: Female

DRUGS (6)
  1. FORADIL [Suspect]
     Dosage: UNK
     Dates: start: 20120301
  2. TEOBID [Concomitant]
     Dosage: 200 MG, QD
     Route: 048
     Dates: start: 20070101, end: 20120201
  3. FORADIL [Suspect]
     Indication: CHRONIC OBSTRUCTIVE PULMONARY DISEASE
     Dosage: 12 UG, BID
     Dates: start: 20070101, end: 20111201
  4. SPIRIVA [Concomitant]
     Dosage: 18 UG, QD
     Dates: start: 20080101
  5. METICORTEN [Concomitant]
  6. SALBUTAN [Concomitant]

REACTIONS (2)
  - ARRHYTHMIA [None]
  - HYPOTHYROIDISM [None]
